FAERS Safety Report 12390697 (Version 3)
Quarter: 2017Q2

REPORT INFORMATION
  Report Type: Spontaneous
  Country: US (occurrence: US)
  Receive Date: 20160520
  Receipt Date: 20170526
  Transmission Date: 20170830
  Serious: Yes (Other)
  Sender: FDA-Public Use
  Company Number: US-ABBVIE-16P-163-1629406-00

PATIENT
  Sex: Female

DRUGS (1)
  1. CREON [Suspect]
     Active Substance: PANCRELIPASE AMYLASE\PANCRELIPASE LIPASE\PANCRELIPASE PROTEASE
     Indication: PRODUCT USED FOR UNKNOWN INDICATION
     Route: 065

REACTIONS (5)
  - Malaise [Unknown]
  - Pancreaticoduodenectomy [Unknown]
  - Pancreatic disorder [Unknown]
  - Impaired gastric emptying [Unknown]
  - Insomnia [Unknown]

NARRATIVE: CASE EVENT DATE: 201602
